FAERS Safety Report 4993073-9 (Version None)
Quarter: 2006Q1

REPORT INFORMATION
  Report Type: 
  Country: None (occurrence: None)
  Receive Date: 20060313
  Receipt Date: 20060105
  Transmission Date: 20060701
  Serious: No
  Sender: FDA-Public Use
  Company Number: 2005-BP-21691BP

PATIENT
  Age: 68 Year
  Sex: Male
  Weight: 85.3 kg

DRUGS (2)
  1. SPIRIVA [Suspect]
     Indication: CHRONIC OBSTRUCTIVE PULMONARY DISEASE
     Dosage: 18 MCG (18 MCG, ONE CAPSULE)
     Dates: start: 20050701, end: 20051205
  2. ZANTAC [Concomitant]

REACTIONS (1)
  - MUSCULAR WEAKNESS [None]
